FAERS Safety Report 17124816 (Version 1)
Quarter: 2019Q4

REPORT INFORMATION
  Report Type: Spontaneous
  Country: FR (occurrence: FR)
  Receive Date: 20191206
  Receipt Date: 20191206
  Transmission Date: 20200122
  Serious: Yes (Other)
  Sender: FDA-Public Use
  Company Number: FR-ASTRAZENECA-2019SF73896

PATIENT
  Sex: Female

DRUGS (2)
  1. PREVISCAN [Concomitant]
  2. INEXIUM [Suspect]
     Active Substance: ESOMEPRAZOLE
     Indication: GASTROOESOPHAGEAL REFLUX DISEASE
     Route: 048
     Dates: start: 2016, end: 20191115

REACTIONS (5)
  - Renal disorder [Unknown]
  - Fungal infection [Unknown]
  - Liver disorder [Unknown]
  - Poisoning [Unknown]
  - Yellow skin [Unknown]
